FAERS Safety Report 4519554-X (Version None)
Quarter: 2004Q4

REPORT INFORMATION
  Report Type: 
  Country: None (occurrence: None)
  Receive Date: 20041206
  Receipt Date: 20041126
  Transmission Date: 20050328
  Serious: Yes (Hospitalization)
  Sender: FDA-Public Use
  Company Number: SE-MERCK-0411SWE00052

PATIENT
  Age: 57 Year
  Sex: Female

DRUGS (8)
  1. SINGULAIR [Suspect]
     Indication: ASTHMA
     Route: 048
     Dates: start: 20040301, end: 20040818
  2. SYMBICORT [Concomitant]
     Route: 065
  3. FOLACIN [Concomitant]
     Route: 065
  4. BEHEPAN [Concomitant]
     Route: 065
  5. PREDNISOLONE [Concomitant]
     Route: 065
  6. NASONEX [Concomitant]
     Route: 065
  7. [THERAPY UNSPECIFIED] [Concomitant]
     Route: 065
  8. AERIUS [Concomitant]
     Route: 065

REACTIONS (2)
  - EOSINOPHILIA [None]
  - LUNG INFILTRATION [None]
